FAERS Safety Report 5734514-9 (Version None)
Quarter: 2008Q2

REPORT INFORMATION
  Report Type: 
  Country: None (occurrence: None)
  Receive Date: 20080512
  Receipt Date: 20080430
  Transmission Date: 20081010
  Serious: Yes (Death)
  Sender: FDA-Public Use
  Company Number: PL-AMGEN-US235110

PATIENT
  Sex: Male
  Weight: 70 kg

DRUGS (5)
  1. ENBREL [Suspect]
     Indication: RHEUMATOID ARTHRITIS
     Route: 058
     Dates: start: 20061206
  2. BETAXOLOL [Concomitant]
     Indication: HYPERTENSION
     Route: 065
  3. METYPRED [Concomitant]
     Indication: RHEUMATOID ARTHRITIS
     Route: 065
  4. ENARENAL [Concomitant]
     Indication: HYPERTENSION
     Route: 065
     Dates: start: 20020101
  5. ENARENAL [Concomitant]
     Indication: CARDIAC FAILURE

REACTIONS (2)
  - FUNGAL SEPSIS [None]
  - SEPTIC SHOCK [None]
